FAERS Safety Report 17377058 (Version 1)
Quarter: 2020Q1

REPORT INFORMATION
  Report Type: Spontaneous
  Country: US (occurrence: US)
  Receive Date: 20200121
  Receipt Date: 20200121
  Transmission Date: 20200409
  Serious: Yes (Life-Threatening)
  Sender: FDA-Public Use
  Company Number: None

PATIENT
  Age: 67 Year
  Sex: Male
  Weight: 114 kg

DRUGS (1)
  1. AMIODARONE (AMIODARONE HCL 50MG/ML INJ, SYRINE,3ML [Suspect]
     Active Substance: AMIODARONE HYDROCHLORIDE
     Indication: ATRIAL FIBRILLATION
     Route: 042
     Dates: start: 20191117, end: 20191117

REACTIONS (4)
  - Flushing [None]
  - Rash [None]
  - Respiratory distress [None]
  - Dizziness [None]

NARRATIVE: CASE EVENT DATE: 20191117
